FAERS Safety Report 8478965-0 (Version None)
Quarter: 2012Q2

REPORT INFORMATION
  Report Type: 
  Country: None (occurrence: None)
  Receive Date: 20120629
  Receipt Date: 20120618
  Transmission Date: 20120825
  Serious: Yes (Hospitalization, Other)
  Sender: FDA-Public Use
  Company Number: US-ROCHE-1061330

PATIENT
  Age: 46 Year
  Sex: Female
  Weight: 73 kg

DRUGS (3)
  1. AVASTIN [Suspect]
     Indication: BREAST CANCER
     Dosage: TOTAL DOSE ADMINISTERED: 1500 MG, LAST DOSE PRIOR TO THE EVENT: 06/FEB/2012
     Route: 042
     Dates: start: 20110214
  2. PACLITAXEL [Suspect]
     Indication: BREAST CANCER
     Dosage: TOTAL DOSE ADMINISTERED: 450 MG, LAST DOSE PRIOR TO THE EVENT: 06/FEB/2012
     Route: 042
     Dates: start: 20110214
  3. DOXORUBICIN HYDROCHLORIDE [Suspect]
     Indication: BREAST CANCER

REACTIONS (3)
  - ONYCHOLYSIS [None]
  - CARDIAC FAILURE [None]
  - RESTRICTIVE CARDIOMYOPATHY [None]
